FAERS Safety Report 11772722 (Version 1)
Quarter: 2015Q4

REPORT INFORMATION
  Report Type: Spontaneous
  Country: US (occurrence: US)
  Receive Date: 20151124
  Receipt Date: 20151124
  Transmission Date: 20160304
  Serious: Yes (Hospitalization)
  Sender: FDA-Public Use
  Company Number: US-MALLINCKRODT-T201502749

PATIENT
  Age: 18 Year
  Sex: Female

DRUGS (12)
  1. CLARITIN [Concomitant]
     Active Substance: LORATADINE
  2. ATROVENT [Concomitant]
     Active Substance: IPRATROPIUM BROMIDE
  3. MIRALAX [Concomitant]
     Active Substance: POLYETHYLENE GLYCOL 3350
  4. TRANXENE T-TAB [Concomitant]
     Active Substance: CLORAZEPATE DIPOTASSIUM
  5. FLOVENT [Concomitant]
     Active Substance: FLUTICASONE PROPIONATE
  6. KLONOPIN [Concomitant]
     Active Substance: CLONAZEPAM
  7. ALBUTEROL. [Concomitant]
     Active Substance: ALBUTEROL
  8. TOPAMAX [Concomitant]
     Active Substance: TOPIRAMATE
  9. KEPPRA [Concomitant]
     Active Substance: LEVETIRACETAM
  10. PRILOSEC [Concomitant]
     Active Substance: OMEPRAZOLE MAGNESIUM
  11. GABLOFEN [Suspect]
     Active Substance: BACLOFEN
     Indication: MUSCLE SPASTICITY
     Dosage: 1613 MCG/DAY
     Route: 037
  12. FLONASE [Concomitant]
     Active Substance: FLUTICASONE PROPIONATE

REACTIONS (2)
  - Medical device complication [Recovered/Resolved]
  - Drug withdrawal syndrome [Recovered/Resolved]

NARRATIVE: CASE EVENT DATE: 20150518
